FAERS Safety Report 10262336 (Version 3)
Quarter: 2014Q3

REPORT INFORMATION
  Report Type: Spontaneous
  Country: US (occurrence: US)
  Receive Date: 20140626
  Receipt Date: 20140811
  Transmission Date: 20150326
  Serious: No
  Sender: FDA-Public Use
  Company Number: US-ASTRAZENECA-2011SE73754

PATIENT
  Age: 26212 Day
  Sex: Female
  Weight: 49.9 kg

DRUGS (5)
  1. SYMBICORT [Suspect]
     Active Substance: BUDESONIDE\FORMOTEROL FUMARATE DIHYDRATE
     Indication: BRONCHITIS CHRONIC
     Dosage: 160/4.5 1 PUFFS, TWO TIMES A DAY
     Route: 055
  2. XANAX [Concomitant]
     Active Substance: ALPRAZOLAM
     Indication: ANXIETY
     Route: 065
  3. VENTOLIN [Concomitant]
     Active Substance: ALBUTEROL SULFATE
     Indication: RESPIRATORY DISORDER
     Dosage: PRN
     Route: 055
  4. VERAMYST [Concomitant]
     Active Substance: FLUTICASONE FUROATE
     Indication: NASAL DISORDER
     Dosage: 27.5 MCG 2 SPRAYS EACH NOSTRI BID
     Route: 045
  5. SYMBICORT [Suspect]
     Active Substance: BUDESONIDE\FORMOTEROL FUMARATE DIHYDRATE
     Indication: BRONCHITIS CHRONIC
     Dosage: 160/4.5 2 PUFFS BID
     Route: 055
     Dates: start: 2011

REACTIONS (4)
  - Bronchitis [Unknown]
  - Drug ineffective [Unknown]
  - Intentional product misuse [Unknown]
  - Bronchial obstruction [Unknown]

NARRATIVE: CASE EVENT DATE: 20140601
